FAERS Safety Report 9559366 (Version 1)
Quarter: 2013Q3

REPORT INFORMATION
  Report Type: Spontaneous
  Country: US (occurrence: None)
  Receive Date: 20130906
  Receipt Date: 20130906
  Transmission Date: 20140515
  Serious: Yes (Other)
  Sender: FDA-Public Use
  Company Number: 163-POMAL-13080249

PATIENT
  Age: 70 Year
  Sex: Female
  Weight: 88.5 kg

DRUGS (12)
  1. POMALYST (POMALIDOMIDE) (4 MILLIGRAM, CAPSULES) [Suspect]
     Indication: PLASMA CELL MYELOMA
     Dosage: 4 MG, 1 IN 1 D, PO
     Route: 048
     Dates: start: 201303
  2. LEXAPRO (ESCITALOPRAM OXALATE) (TABLETS) [Concomitant]
  3. CALCIUM PLUS VITAMIN D (CALCIUM D3 ^STADA^) (TABLETS) [Concomitant]
  4. VITAMIN D3 (COLECALCIFEROL) (TABLETS0 [Concomitant]
  5. SINGULAIR (MONTELUKAST SODIUM) (TABLETS) [Concomitant]
  6. COUMADIN (WARFARIN SODIUM) (TABLETS) [Concomitant]
  7. ENALAPRIL MALEATE (ENALAPRIL MALEATE) (TABLETS) (ENALAPRIL MALEATE) [Concomitant]
  8. LORAZEPAM (LORAZEPAM) (TABLETS) [Concomitant]
  9. ACYCLOVIR (ACICLOVIR) (TABLETS) [Concomitant]
  10. CETIRIZINE HCL (CETIRIZINE HYDROCHLORIDE) (TABLETS) [Concomitant]
  11. OXYCODONE HCL (OXYCODONE HYDROCHLORIDE) (TABLETS) [Concomitant]
  12. DEXAMETHASONE (DEXAMETHASONE) (TABLETS) [Concomitant]

REACTIONS (2)
  - Spinal disorder [None]
  - Pain [None]
